FAERS Safety Report 23700572 (Version 11)
Quarter: 2024Q4

REPORT INFORMATION
  Report Type: Spontaneous
  Country: JP (occurrence: JP)
  Receive Date: 20240403
  Receipt Date: 20241112
  Transmission Date: 20250115
  Serious: Yes (Life-Threatening, Hospitalization, Other)
  Sender: GLAXOSMITHKLINE
  Company Number: JP-GSKJP-JP2024JPN040691AA

PATIENT

DRUGS (63)
  1. DAPRODUSTAT [Suspect]
     Active Substance: DAPRODUSTAT
     Indication: Nephrogenic anaemia
     Dosage: 4 MG, 1D (AFTER DINNER)
     Route: 048
     Dates: start: 20240111
  2. DAPRODUSTAT [Suspect]
     Active Substance: DAPRODUSTAT
     Dosage: 8 MG, 1D
     Route: 048
     Dates: start: 20240206
  3. DAPRODUSTAT [Suspect]
     Active Substance: DAPRODUSTAT
     Dosage: 16 MG, 1D
     Route: 048
     Dates: start: 20240220
  4. DAPRODUSTAT [Suspect]
     Active Substance: DAPRODUSTAT
     Dosage: 24 MG, 1D
     Route: 048
     Dates: start: 20240305
  5. DARBEPOETIN ALFA [Suspect]
     Active Substance: DARBEPOETIN ALFA
     Indication: Nephrogenic anaemia
     Dosage: UNK
  6. DARBEPOETIN ALFA [Suspect]
     Active Substance: DARBEPOETIN ALFA
     Dosage: 60 UG
     Dates: start: 20230513
  7. DARBEPOETIN ALFA [Suspect]
     Active Substance: DARBEPOETIN ALFA
     Dosage: 90 UG, WE
     Dates: start: 202312
  8. BISOPROLOL FUMARATE [Concomitant]
     Active Substance: BISOPROLOL FUMARATE
     Dosage: 0.625 MG, 1D (AFTER LUNCH)
     Dates: end: 202407
  9. P TOL [Concomitant]
     Dosage: 250 MG, TID (IMMEDIATELY BEFORE EVERY MEAL)
     Dates: end: 202308
  10. P TOL [Concomitant]
     Dosage: 500 MG, TID
     Dates: end: 202402
  11. P TOL [Concomitant]
     Dosage: 500 MG, TID (RIGHT BEFORE BREAKFAST, LUNCH AND DINNER)
     Dates: start: 20240311, end: 20240315
  12. DIETARY SUPPLEMENT\PROBIOTICS [Concomitant]
     Active Substance: DIETARY SUPPLEMENT\PROBIOTICS NOS
     Dosage: 1 DF, TID (AFTER BREAKFAST, LUNCH AND DINNER)
     Dates: end: 202406
  13. POLAPREZINC [Concomitant]
     Active Substance: POLAPREZINC
     Dosage: 75 MG, BID (AFTER LUNCH, BEFORE BEDTIME)
     Dates: start: 20240306, end: 20240329
  14. POLAPREZINC [Concomitant]
     Active Substance: POLAPREZINC
     Dosage: 75 MG, 1D (AFTER LUNCH)
     Dates: start: 20240330
  15. POLAPREZINC [Concomitant]
     Active Substance: POLAPREZINC
     Dosage: 75 MG, BID
     Dates: end: 202407
  16. ESOMEPRAZOLE [Concomitant]
     Active Substance: ESOMEPRAZOLE
     Dosage: 20 MG, 1D (AFTER BREAKFAST)
     Dates: start: 20240306, end: 202407
  17. FOLIC ACID [Concomitant]
     Active Substance: FOLIC ACID
     Dosage: 10 MG, 1D (AFTER LUNCH)
     Dates: end: 202407
  18. METHYLCOBALAMIN [Concomitant]
     Active Substance: METHYLCOBALAMIN
     Dosage: 500 UG, TID (AFTER BREAKFAST, LUNCH AND DINNER)
     Dates: start: 20240306, end: 20240329
  19. METHYLCOBALAMIN [Concomitant]
     Active Substance: METHYLCOBALAMIN
     Dosage: 500 UG, BID (AFTER BREAKFAST AND LUNCH)
     Dates: start: 20240330
  20. ASPIRIN [Concomitant]
     Active Substance: ASPIRIN
     Dosage: 100 MG, 1D (AFTER BREAKFAST)
     Dates: end: 202406
  21. ZINC [Concomitant]
     Active Substance: ZINC
     Dosage: 25 MG, BID (AFTER BREAKFAST AND DINNER)
     Dates: end: 202406
  22. ZINC [Concomitant]
     Active Substance: ZINC
     Dosage: 25 MG, 1D (AFTER BREAKFAST)
     Dates: start: 20240330
  23. AMOXICILLIN [Concomitant]
     Active Substance: AMOXICILLIN
     Dosage: 250 MG, BID
     Dates: end: 202308
  24. AMOXICILLIN [Concomitant]
     Active Substance: AMOXICILLIN
     Dosage: 250 MG, 1D
     Dates: start: 20240306
  25. AMOXICILLIN [Concomitant]
     Active Substance: AMOXICILLIN
     Dosage: 250 MG, TID
     Dates: start: 20240307, end: 20240309
  26. AMOXICILLIN [Concomitant]
     Active Substance: AMOXICILLIN
     Dosage: 250 MG, BID (AFTER BREAKFAST AND LUNCH)
     Dates: start: 20240310, end: 20240310
  27. GLYCOSAMINOGLYCANS [Concomitant]
     Active Substance: GLYCOSAMINOGLYCANS
     Dosage: UNK, BID (25 G X 17 PCS)
     Dates: start: 20240311
  28. P TOL [Concomitant]
     Dosage: 250 MG, TID (RIGHT BEFORE BREAKFAST, LUNCH AND DINNER)
     Dates: start: 20240316, end: 20240329
  29. P TOL [Concomitant]
     Dosage: 250 MG, BID (RIGHT BEFORE BREAKFAST AND LUNCH)
     Dates: start: 20240330
  30. ASCORBIC ACID\VITAMINS [Concomitant]
     Active Substance: ASCORBIC ACID\VITAMINS
     Dosage: 250 MG, 1D
     Dates: start: 20240315
  31. ASCORBIC ACID\VITAMINS [Concomitant]
     Active Substance: ASCORBIC ACID\VITAMINS
     Dosage: 250 MG, TID
     Dates: start: 20240316, end: 20240329
  32. ASCORBIC ACID\VITAMINS [Concomitant]
     Active Substance: ASCORBIC ACID\VITAMINS
     Dosage: 250 MG, BID
     Dates: start: 20240330
  33. ASCORBIC ACID\VITAMINS [Concomitant]
     Active Substance: ASCORBIC ACID\VITAMINS
     Dosage: 1 G, TID
     Dates: end: 202407
  34. SODIUM PICOSULFATE [Concomitant]
     Active Substance: SODIUM PICOSULFATE
     Dosage: UNK, 1D (1 PC)
     Dates: start: 20240316
  35. KETOPROFEN [Concomitant]
     Active Substance: KETOPROFEN
     Dosage: 63 SHEETS, 1D (40 MG X 7 SHEETS/SACHET, 2 SACHETS)
     Dates: start: 20240316, end: 202406
  36. DIETARY SUPPLEMENT\PROBIOTICS [Concomitant]
     Active Substance: DIETARY SUPPLEMENT\PROBIOTICS NOS
     Dosage: 1 G, TID (AFTER BREAKFAST, LUNCH AND DINNER)
     Dates: end: 20240329
  37. DIETARY SUPPLEMENT\PROBIOTICS [Concomitant]
     Active Substance: DIETARY SUPPLEMENT\PROBIOTICS NOS
     Dosage: 1 G, BID (AFTER BREAKFAST AND LUNCH)
     Dates: start: 20240330
  38. NEXIUM [Concomitant]
     Active Substance: ESOMEPRAZOLE MAGNESIUM
     Dosage: 20 MG, 1D (AFTER BREAKFAST)
     Dates: end: 202406
  39. SODIUM PICOSULFATE [Concomitant]
     Active Substance: SODIUM PICOSULFATE
     Dosage: UNK
  40. NAFAMOSTAT MESYLATE [Concomitant]
     Active Substance: NAFAMOSTAT MESYLATE
     Indication: Gastrointestinal haemorrhage
     Dosage: 120 MG, 3W
     Route: 041
     Dates: start: 20240313
  41. ROXADUSTAT [Concomitant]
     Active Substance: ROXADUSTAT
     Indication: Nephrogenic anaemia
     Dosage: 120 MG, 3W
     Dates: start: 202104, end: 202312
  42. ROXADUSTAT [Concomitant]
     Active Substance: ROXADUSTAT
     Dosage: 120 MG, 3W
     Route: 048
     Dates: start: 20240521
  43. KAYEXALATE [Concomitant]
     Active Substance: SODIUM POLYSTYRENE SULFONATE
     Dosage: 6.54 G, 1D (AFTER DINNER)
     Dates: end: 202405
  44. RENAGEL [Concomitant]
     Active Substance: SEVELAMER HYDROCHLORIDE
     Dosage: 3000 G, 1D (IMMEDIATELY BEFORE EACH MEAL)
     Dates: end: 202308
  45. BIFIDOBACTERIUM BIFIDUM [Concomitant]
     Active Substance: BIFIDOBACTERIUM BIFIDUM
     Dosage: 12 MG, TID (AFTER EACH MEAL)
     Dates: end: 202407
  46. METHYLCOBALAMIN [Concomitant]
     Active Substance: METHYLCOBALAMIN
     Dosage: 0.5 MG, TID (AFTER EACH MEAL)
     Dates: end: 202407
  47. ASPIRIN [Concomitant]
     Active Substance: ASPIRIN
     Dosage: 100 MG, 1D (AFTER BREAKFAST)
     Dates: end: 202407
  48. CEFACLOR [Concomitant]
     Active Substance: CEFACLOR
     Dosage: 500 MG, 1D (AFTER LUNCH)
     Dates: end: 202310
  49. HYALURONATE SODIUM [Concomitant]
     Active Substance: HYALURONATE SODIUM
     Dosage: 5 BOTTLES, 1 DROP/DOSE
     Dates: end: 202404
  50. HYALURONATE SODIUM [Concomitant]
     Active Substance: HYALURONATE SODIUM
     Dosage: 4 BOTTLES, 1 DROP/DOSE
     Dates: end: 202405
  51. HYALURONATE SODIUM [Concomitant]
     Active Substance: HYALURONATE SODIUM
     Dosage: 5 BOTTLES, 1 DROP/DOSE
     Dates: end: 202406
  52. KETOTIFEN FUMARATE [Concomitant]
     Active Substance: KETOTIFEN FUMARATE
     Dosage: 4 BOTTLES, 1-2 DROPS/DOSE
     Dates: end: 202405
  53. KETOPROFEN [Concomitant]
     Active Substance: KETOPROFEN
     Dosage: 63 SHEETS, 1D
     Dates: end: 202405
  54. ROCALTROL [Concomitant]
     Active Substance: CALCITRIOL
     Dosage: 1 TUBE
     Dates: end: 202312
  55. CYANOCOBALAMIN\PYRIDOXINE HYDROCHLORIDE\THIAMINE [Concomitant]
     Active Substance: CYANOCOBALAMIN\PYRIDOXINE HYDROCHLORIDE\THIAMINE
     Dosage: 1 BOTTLE
     Dates: end: 202402
  56. DEXTROSE [Concomitant]
     Active Substance: DEXTROSE MONOHYDRATE
     Dosage: 1 BOTTLE
     Dates: end: 202309
  57. AMINO ACIDS\ELECTROLYTES NOS [Concomitant]
     Active Substance: AMINO ACIDS\ELECTROLYTES NOS
     Dosage: 1 SACHET
     Dates: end: 202402
  58. LEVOCARNITINE [Concomitant]
     Active Substance: LEVOCARNITINE
     Indication: Carnitine deficiency
     Dosage: 1000 MG, 3W
     Route: 042
     Dates: start: 20200718, end: 202406
  59. CEFAZOLIN SODIUM [Concomitant]
     Active Substance: CEFAZOLIN SODIUM
     Dosage: 1 BOTTLE
     Dates: end: 202310
  60. HEPARINOID [Concomitant]
     Dosage: 100 G, 1-3 TIMES/DAY
     Dates: end: 202404
  61. HEPARINOID [Concomitant]
     Dosage: 125G, 1-3 TIMES/DAY
     Dates: end: 202405
  62. HEPARINOID [Concomitant]
     Dosage: 100 G, 1-3 TIMES/DAY
     Dates: end: 202406
  63. HEPARINOID [Concomitant]
     Dosage: 250 G, 1-3 TIMES/DAY
     Dates: end: 202305

REACTIONS (5)
  - Aplasia pure red cell [Unknown]
  - Anaemia [Unknown]
  - Aplastic anaemia [Unknown]
  - Haemoglobin decreased [Unknown]
  - Product use issue [Unknown]

NARRATIVE: CASE EVENT DATE: 20240123
